FAERS Safety Report 22299983 (Version 1)
Quarter: 2023Q2

REPORT INFORMATION
  Report Type: Spontaneous
  Country: US (occurrence: None)
  Receive Date: 20230508
  Receipt Date: 20230508
  Transmission Date: 20230722
  Serious: Yes (Death, Hospitalization)
  Sender: FDA-Public Use
  Company Number: None

PATIENT
  Age: 48 Year
  Sex: Female

DRUGS (15)
  1. TADALAFIL [Suspect]
     Active Substance: TADALAFIL
     Indication: Pulmonary hypertension
     Dosage: 20MG QD ORAL
     Route: 048
     Dates: start: 20210726, end: 20230413
  2. SELEXIPAG [Concomitant]
  3. LEXAPRO [Concomitant]
     Active Substance: ESCITALOPRAM OXALATE
  4. PANTOPRAZOLE [Concomitant]
  5. POTASSIUM CHLORIDE [Concomitant]
  6. ALLOPURINOL [Concomitant]
     Active Substance: ALLOPURINOL
  7. ASPIRIN [Concomitant]
  8. ONDANSETRON [Concomitant]
  9. TORSEMIDE [Concomitant]
     Active Substance: TORSEMIDE
  10. CULTURELLE [Concomitant]
     Active Substance: LACTOBACILLUS RHAMNOSUS
  11. SPIRONOLACTONE [Concomitant]
     Active Substance: SPIRONOLACTONE
  12. ACETAMINOPHEN [Concomitant]
     Active Substance: ACETAMINOPHEN
  13. PROCHLORPERAZINE [Concomitant]
     Active Substance: PROCHLORPERAZINE
  14. ALBUTEROL HFA [Concomitant]
  15. ALVESCO HFA [Concomitant]

REACTIONS (10)
  - Tachycardia [None]
  - Bradycardia [None]
  - Pulse absent [None]
  - Sepsis [None]
  - Respiratory failure [None]
  - Scleroderma [None]
  - Type 2 diabetes mellitus [None]
  - Pulmonary embolism [None]
  - Pulmonary hypertension [None]
  - Obstructive sleep apnoea syndrome [None]

NARRATIVE: CASE EVENT DATE: 20230413
